FAERS Safety Report 4326262-7 (Version None)
Quarter: 2004Q1

REPORT INFORMATION
  Report Type: 
  Country: None (occurrence: None)
  Receive Date: 20040324
  Receipt Date: 20030218
  Transmission Date: 20041129
  Serious: Yes (Hospitalization)
  Sender: FDA-Public Use
  Company Number: AE-10647

PATIENT
  Age: 72 Year
  Sex: Female

DRUGS (4)
  1. PENTAZOCINE HYDROCHLORIDE [Suspect]
     Indication: CHEST PAIN
     Dosage: 50MG PO
     Route: 048
     Dates: start: 20021021, end: 20021030
  2. CARBAMAZEPINE [Suspect]
     Indication: CHEST PAIN
     Dosage: 200 MG PO
     Route: 048
     Dates: start: 20021012, end: 20021030
  3. MEXILETINE HYDROCHLORIDE [Suspect]
     Indication: CHEST PAIN
     Dosage: 200MG PO
     Route: 048
     Dates: start: 20021016, end: 20021030
  4. LOXOPROFEN SODIUM [Concomitant]

REACTIONS (5)
  - EYE PRURITUS [None]
  - MARKEDLY REDUCED DIETARY INTAKE [None]
  - MUCOSAL EROSION [None]
  - NASOPHARYNGEAL DISORDER [None]
  - OCULOMUCOCUTANEOUS SYNDROME [None]
